FAERS Safety Report 16473661 (Version 1)
Quarter: 2019Q2

REPORT INFORMATION
  Report Type: Spontaneous
  Country: US (occurrence: US)
  Receive Date: 20190625
  Receipt Date: 20190625
  Transmission Date: 20190711
  Serious: No
  Sender: FDA-Public Use
  Company Number: US-AMGEN-USASP2019096659

PATIENT
  Age: 77 Year
  Sex: Female

DRUGS (11)
  1. OMEGA 3 [FISH OIL] [Concomitant]
     Active Substance: FISH OIL
  2. GLUCOSAMINE [Concomitant]
     Active Substance: GLUCOSAMINE
  3. VITAMIN B12 [Concomitant]
     Active Substance: CYANOCOBALAMIN
  4. ZANTAC [Concomitant]
     Active Substance: RANITIDINE HYDROCHLORIDE
  5. CALCIUM [Concomitant]
     Active Substance: CALCIUM
  6. METOPROLOL. [Concomitant]
     Active Substance: METOPROLOL
  7. PROLIA [Suspect]
     Active Substance: DENOSUMAB
     Indication: PRODUCT USED FOR UNKNOWN INDICATION
     Dosage: UNK
     Route: 065
     Dates: start: 20190515
  8. VITAMIN D NOS [Concomitant]
     Active Substance: VITAMIN D NOS
  9. TURMERIC [CURCUMA LONGA] [Concomitant]
  10. CLINDAMYCIN. [Concomitant]
     Active Substance: CLINDAMYCIN
  11. VITAMIN E [Concomitant]
     Active Substance: .ALPHA.-TOCOPHEROL

REACTIONS (2)
  - Arthralgia [Unknown]
  - Pain in extremity [Unknown]

NARRATIVE: CASE EVENT DATE: 2019
